FAERS Safety Report 11482975 (Version 1)
Quarter: 2015Q3

REPORT INFORMATION
  Report Type: Spontaneous
  Country: US (occurrence: US)
  Receive Date: 20150909
  Receipt Date: 20150909
  Transmission Date: 20151125
  Serious: No
  Sender: FDA-Public Use
  Company Number: US-JAZZ-JPI-P-031859

PATIENT
  Age: 78 Year
  Sex: Female

DRUGS (3)
  1. XYREM [Suspect]
     Active Substance: SODIUM OXYBATE
     Dosage: DOSE ADJUSTMENTS
     Route: 048
     Dates: end: 2013
  2. XYREM [Suspect]
     Active Substance: SODIUM OXYBATE
     Dosage: 2 G, QID
     Route: 048
     Dates: start: 201308
  3. XYREM [Suspect]
     Active Substance: SODIUM OXYBATE
     Indication: TREMOR
     Dosage: 2.25 G, BID
     Route: 048
     Dates: start: 201011, end: 2010

REACTIONS (4)
  - Dizziness [Not Recovered/Not Resolved]
  - Pneumonia [Unknown]
  - Off label use [Unknown]
  - Malaise [Not Recovered/Not Resolved]

NARRATIVE: CASE EVENT DATE: 201305
